FAERS Safety Report 4969840-4 (Version None)
Quarter: 2006Q1

REPORT INFORMATION
  Report Type: 
  Country: None (occurrence: None)
  Receive Date: 20060201
  Receipt Date: 20051101
  Transmission Date: 20060701
  Serious: Yes (Hospitalization)
  Sender: FDA-Public Use
  Company Number: FACT0500657

PATIENT
  Age: 72 Year
  Sex: Female

DRUGS (2)
  1. FACTIVE [Suspect]
     Indication: RESPIRATORY TRACT INFECTION BACTERIAL
     Dosage: 320 MG QD ORAL
     Route: 048
  2. LEVAQUIN [Suspect]
     Indication: PNEUMONIA
     Dates: start: 20051001

REACTIONS (2)
  - DRUG INEFFECTIVE [None]
  - RASH [None]
